FAERS Safety Report 6053736-3 (Version None)
Quarter: 2009Q1

REPORT INFORMATION
  Report Type: 
  Country: None (occurrence: None)
  Receive Date: 20090127
  Receipt Date: 20081030
  Transmission Date: 20090719
  Serious: Yes (Hospitalization)
  Sender: FDA-Public Use
  Company Number: US-TEVA-177314USA

PATIENT
  Sex: Female

DRUGS (1)
  1. COPAXONE [Suspect]
     Indication: MULTIPLE SCLEROSIS
     Route: 058
     Dates: start: 20010601, end: 20020301

REACTIONS (5)
  - GAIT DISTURBANCE [None]
  - HYPOAESTHESIA [None]
  - INJECTION SITE REACTION [None]
  - PARAESTHESIA [None]
  - STRESS [None]
